FAERS Safety Report 17425348 (Version 1)
Quarter: 2020Q1

REPORT INFORMATION
  Report Type: Spontaneous
  Country: US (occurrence: US)
  Receive Date: 20200217
  Receipt Date: 20200217
  Transmission Date: 20200409
  Serious: Yes (Other)
  Sender: FDA-Public Use
  Company Number: US-MYLANLABS-2020M1014333

PATIENT
  Sex: Female

DRUGS (1)
  1. MITOMYCIN FOR INJECTION USP [Suspect]
     Active Substance: MITOMYCIN
     Indication: GASTROINTESTINAL CARCINOMA
     Dosage: UNK  ^FOR A MONTH^
     Route: 042

REACTIONS (3)
  - Skin reaction [Recovering/Resolving]
  - Extravasation [Recovering/Resolving]
  - Infected skin ulcer [Recovering/Resolving]

NARRATIVE: CASE EVENT DATE: 201906
